FAERS Safety Report 5178491-0 (Version None)
Quarter: 2006Q4

REPORT INFORMATION
  Report Type: 
  Country: None (occurrence: None)
  Receive Date: 20061218
  Receipt Date: 20060819
  Transmission Date: 20070319
  Serious: No
  Sender: FDA-Public Use
  Company Number: US-AMGEN-KDL190624

PATIENT
  Sex: Male

DRUGS (8)
  1. ENBREL [Suspect]
     Indication: RHEUMATOID ARTHRITIS
     Route: 058
     Dates: start: 20030201
  2. METHOTREXATE [Concomitant]
  3. PLAQUENIL [Concomitant]
  4. HYDROCORTISONE [Concomitant]
  5. PREDNISONE TAB [Concomitant]
  6. ASTELIN [Concomitant]
     Route: 045
  7. RESTASIS [Concomitant]
  8. PATANOL [Concomitant]

REACTIONS (1)
  - INJECTION SITE BRUISING [None]
